FAERS Safety Report 5252931-0 (Version None)
Quarter: 2007Q1

REPORT INFORMATION
  Report Type: 
  Country: None (occurrence: None)
  Receive Date: 20070301
  Receipt Date: 20070219
  Transmission Date: 20070707
  Serious: Yes (Hospitalization)
  Sender: FDA-Public Use
  Company Number: GB-BRISTOL-MYERS SQUIBB COMPANY-13684170

PATIENT
  Age: 52 Year
  Sex: Male
  Weight: 73 kg

DRUGS (3)
  1. ATAZANAVIR SULFATE [Suspect]
     Route: 048
     Dates: start: 20031120, end: 20061122
  2. PRAVASTATIN SODIUM [Concomitant]
     Route: 048
  3. TRUVADA [Concomitant]
     Indication: HIV INFECTION
     Route: 048
     Dates: start: 20050626

REACTIONS (1)
  - CALCULUS URETERIC [None]
